FAERS Safety Report 6689392-0 (Version None)
Quarter: 2010Q2

REPORT INFORMATION
  Report Type: 
  Country: None (occurrence: None)
  Receive Date: 20100419
  Receipt Date: 20100419
  Transmission Date: 20101027
  Serious: Yes (Other)
  Sender: FDA-Public Use
  Company Number: None

PATIENT
  Age: 37 Year
  Sex: Female
  Weight: 117.9352 kg

DRUGS (2)
  1. MUCINEX [Suspect]
     Indication: COUGH
     Dosage: NORMAL DOSE SPECIFIED ON PKG. AS ON PKG. PO
     Route: 048
     Dates: start: 20071228, end: 20080102
  2. MUCINEX [Suspect]
     Indication: LOWER RESPIRATORY TRACT INFECTION
     Dosage: NORMAL DOSE SPECIFIED ON PKG. AS ON PKG. PO
     Route: 048
     Dates: start: 20071228, end: 20080102

REACTIONS (2)
  - DYSGEUSIA [None]
  - DYSTONIA [None]
